FAERS Safety Report 22048034 (Version 7)
Quarter: 2024Q4

REPORT INFORMATION
  Report Type: Report from Study
  Country: US (occurrence: US)
  Receive Date: 20230301
  Receipt Date: 20241001
  Transmission Date: 20250115
  Serious: Yes (Other)
  Sender: NOVARTIS
  Company Number: US-002147023-NVSC2023US047254

PATIENT
  Sex: Male

DRUGS (1)
  1. TASIGNA [Suspect]
     Active Substance: NILOTINIB
     Indication: Product used for unknown indication
     Dosage: 200 MG, BID
     Route: 065

REACTIONS (6)
  - Hip fracture [Unknown]
  - Ankle fracture [Unknown]
  - Gait disturbance [Unknown]
  - Fall [Unknown]
  - Disorientation [Unknown]
  - Product use issue [Unknown]
